FAERS Safety Report 8773630 (Version 2)
Quarter: 2013Q2

REPORT INFORMATION
  Report Type: Spontaneous
  Country: IT (occurrence: IT)
  Receive Date: 20120907
  Receipt Date: 20130408
  Transmission Date: 20140414
  Serious: Yes (Hospitalization)
  Sender: FDA-Public Use
  Company Number: IT-ROCHE-1118428

PATIENT
  Age: 30 Year
  Sex: Male

DRUGS (5)
  1. MABTHERA [Suspect]
     Indication: NON-HODGKIN^S LYMPHOMA RECURRENT
     Route: 042
     Dates: start: 20120725, end: 20120903
  2. IFOSFAMIDE [Concomitant]
  3. VINORELBINA [Concomitant]
  4. UROMITEXAN [Concomitant]
  5. PREDNISONE [Concomitant]

REACTIONS (3)
  - Hypotension [Recovered/Resolved]
  - Loss of consciousness [Recovered/Resolved]
  - Throat tightness [Recovered/Resolved]
